FAERS Safety Report 5400790-5 (Version None)
Quarter: 2007Q3

REPORT INFORMATION
  Report Type: 
  Country: None (occurrence: None)
  Receive Date: 20070730
  Receipt Date: 20070720
  Transmission Date: 20080115
  Serious: Yes (Other)
  Sender: FDA-Public Use
  Company Number: ZA-PFIZER INC-2007060785

PATIENT
  Age: 40 Year
  Sex: Female

DRUGS (5)
  1. ATORVASTATIN CALCIUM [Suspect]
     Route: 048
     Dates: start: 20070601, end: 20070601
  2. EZETROL [Concomitant]
     Dosage: DAILY DOSE:10MG
     Route: 048
  3. OMEGA 3 [Concomitant]
  4. OMEGA 6 TRIGLYCERIDES [Concomitant]
  5. FOLIC ACID [Concomitant]

REACTIONS (1)
  - MUSCLE SPASMS [None]
